FAERS Safety Report 9641280 (Version 2)
Quarter: 2013Q4

REPORT INFORMATION
  Report Type: Spontaneous
  Country: US (occurrence: US)
  Receive Date: 20131023
  Receipt Date: 20131121
  Transmission Date: 20140711
  Serious: No
  Sender: FDA-Public Use
  Company Number: US-PFIZER INC-2013301676

PATIENT
  Sex: Female

DRUGS (4)
  1. LYRICA [Suspect]
     Dosage: UNK
  2. ACCUPRIL [Concomitant]
     Dosage: UNK
  3. SKELAXIN [Concomitant]
     Dosage: UNK
  4. CORTEF [Concomitant]
     Dosage: UNK

REACTIONS (2)
  - Stress [Unknown]
  - Therapeutic response unexpected [Unknown]
